FAERS Safety Report 7596072-6 (Version None)
Quarter: 2011Q3

REPORT INFORMATION
  Report Type: 
  Country: None (occurrence: None)
  Receive Date: 20110707
  Receipt Date: 20110704
  Transmission Date: 20111222
  Serious: Yes (Death)
  Sender: FDA-Public Use
  Company Number: PHHY2011RO59418

PATIENT
  Age: 24 Year
  Sex: Female

DRUGS (2)
  1. PHENYTOIN [Concomitant]
     Indication: CONVULSION
     Dosage: UNK UKN, UNK
  2. CARBAMAZEPINE [Suspect]
     Indication: CONVULSION
     Dosage: UNK UKN, UNK

REACTIONS (5)
  - AMNESIA [None]
  - SUDDEN UNEXPLAINED DEATH IN EPILEPSY [None]
  - COGNITIVE DISORDER [None]
  - DRUG INEFFECTIVE [None]
  - MENSTRUAL DISORDER [None]
